FAERS Safety Report 5875275-2 (Version None)
Quarter: 2008Q3

REPORT INFORMATION
  Report Type: 
  Country: None (occurrence: None)
  Receive Date: 20080909
  Receipt Date: 20080903
  Transmission Date: 20090109
  Serious: Yes (Hospitalization, Other)
  Sender: FDA-Public Use
  Company Number: US-ABBOTT-08P-163-0471032-00

PATIENT
  Sex: Female
  Weight: 59.02 kg

DRUGS (3)
  1. HUMIRA [Suspect]
     Indication: RHEUMATOID ARTHRITIS
     Route: 058
     Dates: start: 20070101, end: 20080801
  2. HUMIRA [Suspect]
     Dates: start: 20080801
  3. METHOTREXATE [Concomitant]
     Indication: RHEUMATOID ARTHRITIS
     Dosage: 8 TABLETS EVERY WEEK

REACTIONS (5)
  - CHEST DISCOMFORT [None]
  - CHOLELITHIASIS [None]
  - DISCOMFORT [None]
  - NAUSEA [None]
  - VOMITING [None]
